FAERS Safety Report 11639430 (Version 1)
Quarter: 2015Q4

REPORT INFORMATION
  Report Type: Spontaneous
  Country: US (occurrence: None)
  Receive Date: 20151016
  Receipt Date: 20151016
  Transmission Date: 20160304
  Serious: Yes (Hospitalization)
  Sender: FDA-Public Use
  Company Number: None

PATIENT
  Age: 56 Year
  Sex: Female
  Weight: 52 kg

DRUGS (1)
  1. TAMOXIFEN [Suspect]
     Active Substance: TAMOXIFEN
     Indication: BREAST CANCER
     Route: 048
     Dates: start: 2012

REACTIONS (4)
  - Cervix disorder [None]
  - Postmenopausal haemorrhage [None]
  - Endometrial atrophy [None]
  - Endometrial thickening [None]

NARRATIVE: CASE EVENT DATE: 20150625
